FAERS Safety Report 5692125-8 (Version None)
Quarter: 2008Q2

REPORT INFORMATION
  Report Type: 
  Country: None (occurrence: None)
  Receive Date: 20080402
  Receipt Date: 20080321
  Transmission Date: 20081010
  Serious: Yes (Other)
  Sender: FDA-Public Use
  Company Number: US-PFIZER INC-2008026400

PATIENT
  Sex: Female
  Weight: 59.4 kg

DRUGS (11)
  1. LYRICA [Suspect]
     Indication: NEUROPATHY PERIPHERAL
     Route: 048
     Dates: start: 20080320, end: 20080321
  2. LYRICA [Suspect]
     Indication: FIBROMYALGIA
  3. ATENOLOL [Concomitant]
  4. LASIX [Concomitant]
  5. COZAAR [Concomitant]
  6. SPIRONOLACTONE [Concomitant]
  7. COUMADIN [Concomitant]
  8. ZETIA [Concomitant]
  9. TRICOR [Concomitant]
  10. OXYCONTIN [Concomitant]
  11. ALL OTHER THERAPEUTIC PRODUCTS [Concomitant]

REACTIONS (14)
  - ANGIOEDEMA [None]
  - BRONCHOSPASM [None]
  - DIZZINESS [None]
  - DRUG HYPERSENSITIVITY [None]
  - FEELING ABNORMAL [None]
  - GAIT DISTURBANCE [None]
  - HYPERSENSITIVITY [None]
  - LUNG INFECTION [None]
  - MALAISE [None]
  - MENTAL IMPAIRMENT [None]
  - MUSCLE DISORDER [None]
  - NOCTURNAL DYSPNOEA [None]
  - SWELLING [None]
  - THINKING ABNORMAL [None]
